FAERS Safety Report 9922624 (Version 1)
Quarter: 2014Q1

REPORT INFORMATION
  Report Type: Spontaneous
  Country: US (occurrence: US)
  Receive Date: 20140225
  Receipt Date: 20140225
  Transmission Date: 20141002
  Serious: No
  Sender: FDA-Public Use
  Company Number: US-MYLANLABS-2013S1024465

PATIENT
  Age: 28 Year
  Sex: Male
  Weight: 95.26 kg

DRUGS (6)
  1. DIVALPROEX SODIUM EXTENDED-RELEASE TABLETS [Suspect]
     Indication: SCHIZOPHRENIA
     Route: 048
     Dates: start: 20131022, end: 20131026
  2. DIVALPROEX SODIUM EXTENDED-RELEASE TABLETS [Suspect]
     Indication: OFF LABEL USE
     Route: 048
     Dates: start: 20131022, end: 20131026
  3. ZYPREXA [Concomitant]
     Indication: SCHIZOPHRENIA
  4. ABILIFY [Concomitant]
     Indication: SCHIZOPHRENIA
  5. AMBIEN [Concomitant]
     Indication: SCHIZOPHRENIA
  6. LORAZEPAM [Concomitant]
     Indication: SCHIZOPHRENIA

REACTIONS (3)
  - Drug ineffective for unapproved indication [Not Recovered/Not Resolved]
  - Abnormal behaviour [Not Recovered/Not Resolved]
  - Medication residue present [Not Recovered/Not Resolved]
